FAERS Safety Report 8933723 (Version 1)
Quarter: 2012Q4

REPORT INFORMATION
  Report Type: Report from Study
  Country: DE (occurrence: DE)
  Receive Date: 20121128
  Receipt Date: 20121128
  Transmission Date: 20130627
  Serious: Yes (Other)
  Sender: FDA-Public Use
  Company Number: DE-GILEAD-2012-0065434

PATIENT
  Age: 32 Year
  Sex: Female

DRUGS (9)
  1. AMBRISENTAN [Suspect]
     Indication: PULMONARY ARTERIAL HYPERTENSION
     Dosage: 5 mg, QD
     Route: 048
     Dates: start: 20100304
  2. AMBRISENTAN [Suspect]
     Dosage: UNK
  3. REVATIO [Concomitant]
     Indication: PULMONARY ARTERIAL HYPERTENSION
     Dosage: 20MG Three times per day
     Route: 048
     Dates: start: 20100114
  4. COUMADIN                           /00014802/ [Concomitant]
     Indication: PULMONARY ARTERIAL HYPERTENSION
     Route: 048
     Dates: start: 20100304
  5. PANTOPRAZOL [Concomitant]
     Indication: PROPHYLAXIS
     Dosage: 20MG Per day
     Route: 048
     Dates: start: 20100114
  6. ESIDRIX [Concomitant]
     Indication: PULMONARY ARTERIAL HYPERTENSION
     Dosage: 25MG Per day
     Route: 048
     Dates: start: 20100304
  7. SPIRONOLACTON [Concomitant]
     Indication: PULMONARY ARTERIAL HYPERTENSION
     Dosage: 25MG Per day
     Route: 048
     Dates: start: 20100114
  8. IDEOS [Concomitant]
     Indication: PULMONARY ARTERIAL HYPERTENSION
     Route: 048
     Dates: start: 20100114
  9. NOVAMINSULFON [Concomitant]
     Indication: PULMONARY ARTERIAL HYPERTENSION
     Route: 048
     Dates: start: 20100516

REACTIONS (1)
  - Syncope [Recovered/Resolved]
